FAERS Safety Report 8786268 (Version 1)
Quarter: 2012Q4

REPORT INFORMATION
  Report Type: 
  Country: BR (occurrence: BR)
  Receive Date: 20120914
  Receipt Date: 20120914
  Transmission Date: 20130627
  Serious: Yes (Other)
  Sender: FDA-Public Use
  Company Number: PHHY2012BR079315

PATIENT
  Age: 66 Year
  Sex: Female

DRUGS (8)
  1. DIOVAN HCT [Suspect]
     Indication: MYOCARDIAL INFARCTION
     Dosage: 1 DF (160mg vals/ 25mg HCT), daily
     Route: 048
     Dates: start: 2004
  2. SIMVASTATIN [Concomitant]
     Indication: BLOOD CHOLESTEROL ABNORMAL
     Dosage: 1 DF, daily
     Route: 048
  3. GLIFAGE XR [Concomitant]
     Indication: BLOOD CHOLESTEROL ABNORMAL
     Dosage: 1 DF, daily
     Route: 048
  4. CARVEDILOL [Concomitant]
     Indication: STENT PLACEMENT
     Dosage: 2 DF, daily
     Route: 048
     Dates: start: 20120730
  5. OMEGA 3 [Concomitant]
     Indication: MEDICAL DIET
     Dosage: 2 DF, daily
     Route: 048
     Dates: start: 20120907
  6. VITERGAN ZINCO [Concomitant]
  7. RASIALFATOCEROL ACETATE [Concomitant]
  8. CLOPIDOGREL BISULFATE [Concomitant]

REACTIONS (2)
  - Myocardial infarction [Recovering/Resolving]
  - Weight increased [Unknown]
